FAERS Safety Report 8609488-3 (Version None)
Quarter: 2012Q3

REPORT INFORMATION
  Report Type: 
  Country: None (occurrence: None)
  Receive Date: 20120821
  Receipt Date: 20120814
  Transmission Date: 20120928
  Serious: Yes (Hospitalization)
  Sender: FDA-Public Use
  Company Number: DE-UCBSA-055209

PATIENT
  Sex: Female
  Weight: 96 kg

DRUGS (1)
  1. CIMZIA [Suspect]
     Indication: RHEUMATOID ARTHRITIS
     Route: 058
     Dates: start: 20110330, end: 20120709

REACTIONS (3)
  - DIVERTICULITIS [None]
  - NAUSEA [None]
  - DIARRHOEA [None]
